FAERS Safety Report 6360532-6 (Version None)
Quarter: 2009Q3

REPORT INFORMATION
  Report Type: 
  Country: None (occurrence: None)
  Receive Date: 20090817
  Receipt Date: 20081205
  Transmission Date: 20100115
  Serious: No
  Sender: FDA-Public Use
  Company Number: 20085397

PATIENT
  Sex: Male

DRUGS (2)
  1. LIORESAL [Suspect]
     Indication: MUSCLE SPASTICITY
     Dosage: DAILY, INTRATHECAL
     Route: 037
  2. UNSPECIFIED ANTI-SEIZURE MEDICATION [Concomitant]

REACTIONS (4)
  - CONVULSION [None]
  - GAIT DISTURBANCE [None]
  - HEADACHE [None]
  - INJURY [None]
